FAERS Safety Report 12904426 (Version 2)
Quarter: 2016Q4

REPORT INFORMATION
  Report Type: Spontaneous
  Country: SK (occurrence: SK)
  Receive Date: 20161102
  Receipt Date: 20161123
  Transmission Date: 20170207
  Serious: Yes (Hospitalization)
  Sender: FDA-Public Use
  Company Number: SK-SA-2016SA196829

PATIENT
  Age: 62 Year
  Sex: Female
  Weight: 79 kg

DRUGS (11)
  1. BETALOC [Concomitant]
     Active Substance: METOPROLOL TARTRATE
     Dates: start: 20090820
  2. GANATON [Concomitant]
     Active Substance: ITOPRIDE
     Dates: start: 20160106
  3. ENTRESTO [Suspect]
     Active Substance: SACUBITRIL\VALSARTAN
     Indication: CARDIAC FAILURE CHRONIC
     Route: 048
     Dates: start: 20150717
  4. PROCORALAN [Concomitant]
     Active Substance: IVABRADINE
     Dates: start: 20110308
  5. HUMULIN R [Concomitant]
     Active Substance: INSULIN HUMAN
     Dates: start: 20090722
  6. CLOPIDOGREL [Suspect]
     Active Substance: CLOPIDOGREL BISULFATE
     Indication: CORONARY ARTERY DISEASE
     Route: 065
     Dates: start: 20120118
  7. FURON [Concomitant]
     Active Substance: FUROSEMIDE
     Dates: start: 20110308
  8. ELEVEON [Concomitant]
     Dates: start: 20090826
  9. NOLPAZA [Concomitant]
     Active Substance: PANTOPRAZOLE SODIUM
     Dates: start: 20160106
  10. TORVACARD [Concomitant]
     Active Substance: ATORVASTATIN CALCIUM
     Dates: start: 20110308
  11. ANOPYRIN [Concomitant]
     Active Substance: ASPIRIN
     Dates: start: 20030109

REACTIONS (2)
  - Duodenitis [Recovered/Resolved]
  - Diverticulum intestinal [Recovered/Resolved]

NARRATIVE: CASE EVENT DATE: 20160106
